FAERS Safety Report 9031929 (Version 2)
Quarter: 2013Q1

REPORT INFORMATION
  Report Type: Report from Study
  Country: US (occurrence: US)
  Receive Date: 20130125
  Receipt Date: 20130128
  Transmission Date: 20140127
  Serious: Yes (Other)
  Sender: FDA-Public Use
  Company Number: US-PFIZER INC-2011095057

PATIENT
  Age: 66 Year
  Sex: Female
  Weight: 90.7 kg

DRUGS (10)
  1. LYRICA [Suspect]
     Indication: FIBROMYALGIA
     Dosage: 150 MG, 2X/DAY
     Route: 048
  2. LYRICA [Suspect]
     Dosage: 150 MG, 3X/DAY
  3. HYDROCHLOROTHIAZIDE [Concomitant]
     Dosage: 25 MG, 1X/DAY
     Route: 048
  4. NORVASC [Concomitant]
     Dosage: 5 MG, 1X/DAY
     Route: 048
  5. CLARITIN [Concomitant]
     Indication: HYPERSENSITIVITY
     Dosage: 10 MG, QD AS NEEDED (PRN)
     Route: 048
  6. AMBIEN [Concomitant]
     Indication: INSOMNIA
     Dosage: 10 MG, QHS, AS NEEDED (PRN)
     Route: 048
  7. MOBIC [Concomitant]
     Dosage: 15 MG, 1X/DAY
     Route: 048
  8. PAXIL [Concomitant]
     Dosage: 20 MG, 1X/DAY
     Route: 048
  9. ZANTAC [Concomitant]
     Dosage: 300 UNK, TWICE DAILY, AS NEEDED (PRN)
     Route: 048
  10. TYLENOL W/CODEINE NO. 3 [Concomitant]
     Indication: PAIN
     Dosage: 1-2 PO Q6 HRS AS NEEDED (PRN)
     Route: 048

REACTIONS (2)
  - Endometrial cancer [Unknown]
  - Intervertebral disc degeneration [Unknown]
